FAERS Safety Report 5196678-8 (Version None)
Quarter: 2007Q1

REPORT INFORMATION
  Report Type: 
  Country: None (occurrence: None)
  Receive Date: 20070103
  Receipt Date: 20061227
  Transmission Date: 20070707
  Serious: Yes (Hospitalization)
  Sender: FDA-Public Use
  Company Number: PHNU2006DE04277

PATIENT
  Sex: Male

DRUGS (21)
  1. TRILEPTAL [Suspect]
     Indication: EPILEPSY
     Dosage: 1200 MG/D
     Route: 048
     Dates: start: 20040201, end: 20040820
  2. TRILEPTAL [Suspect]
     Dosage: 1050-750 MG/D
     Route: 048
     Dates: start: 20040821, end: 20040824
  3. TRILEPTAL [Suspect]
     Dosage: 600 MG/D
     Route: 048
     Dates: start: 20040825, end: 20040827
  4. VALPROATE SODIUM [Suspect]
     Route: 048
     Dates: start: 20040821
  5. VALPROATE SODIUM [Suspect]
     Dosage: 450 MG/D
     Route: 048
     Dates: start: 20040822
  6. VALPROATE SODIUM [Suspect]
     Dosage: 600 MG/D
     Route: 048
     Dates: start: 20040823
  7. VALPROATE SODIUM [Suspect]
     Dosage: 750 MG/D
     Route: 048
     Dates: start: 20040824
  8. VALPROATE SODIUM [Suspect]
     Dosage: 900 MG/D
     Route: 048
     Dates: start: 20060825
  9. VALPROATE SODIUM [Suspect]
     Dosage: 1200 MG/D
     Route: 048
     Dates: start: 20040826
  10. VALPROATE SODIUM [Suspect]
     Dosage: 1500 MG/D
     Route: 048
     Dates: start: 20040827
  11. VALPROATE SODIUM [Suspect]
     Dosage: 1650 MG/D
     Route: 048
     Dates: start: 20040828
  12. VALPROATE SODIUM [Suspect]
     Dosage: 1800 MG/D
     Route: 048
     Dates: start: 20040829, end: 20040831
  13. LUMINAL [Concomitant]
     Dosage: 200 MG/D
     Route: 048
     Dates: start: 20040813, end: 20040829
  14. LUMINAL [Concomitant]
     Dosage: 200 MG/D
     Route: 048
     Dates: start: 20040903
  15. EUNERPAN [Concomitant]
     Dosage: 50 MG/D
     Route: 048
     Dates: start: 20040814, end: 20040829
  16. TAVOR [Concomitant]
     Dosage: 1 MG/D
     Route: 048
     Dates: start: 20040820, end: 20040827
  17. TAVOR [Concomitant]
     Dosage: 2 MG/D
     Route: 048
     Dates: start: 20040828, end: 20040830
  18. BELOC ZOK [Concomitant]
     Dosage: 190 MG/D
     Route: 048
  19. LASIX [Concomitant]
     Dosage: 40 MG/D
     Route: 048
  20. DELIX [Concomitant]
     Dosage: 5 MG/D
     Route: 048
  21. GODAMED [Concomitant]
     Dosage: 100 MG/D
     Route: 048
     Dates: start: 20040820

REACTIONS (10)
  - APATHY [None]
  - BLOOD SODIUM DECREASED [None]
  - CONFUSIONAL STATE [None]
  - DISORIENTATION [None]
  - ELECTROENCEPHALOGRAM ABNORMAL [None]
  - ENCEPHALOPATHY [None]
  - GASTROINTESTINAL TUBE INSERTION [None]
  - MENTAL RETARDATION SEVERITY UNSPECIFIED [None]
  - PARENTERAL NUTRITION [None]
  - SOMNOLENCE [None]
